FAERS Safety Report 25041805 (Version 5)
Quarter: 2025Q2

REPORT INFORMATION
  Report Type: Spontaneous
  Country: US (occurrence: US)
  Receive Date: 20250305
  Receipt Date: 20250424
  Transmission Date: 20250716
  Serious: No
  Sender: PFIZER
  Company Number: US-PFIZER INC-202500047581

PATIENT
  Age: 11 Year
  Sex: Female

DRUGS (3)
  1. GENOTROPIN [Suspect]
     Active Substance: SOMATROPIN
     Indication: Hypopituitarism
     Dosage: 1.6 MG, DAILY
     Dates: start: 202310
  2. GENOTROPIN [Suspect]
     Active Substance: SOMATROPIN
     Indication: Growth hormone deficiency
     Dates: start: 202410
  3. GENOTROPIN [Suspect]
     Active Substance: SOMATROPIN
     Dosage: 1.8 MG, DAILY (7 DAYS/WEEK)
     Route: 058

REACTIONS (24)
  - Drug dose omission by device [Unknown]
  - Device malfunction [Unknown]
  - Product storage error [Unknown]
  - Device physical property issue [Unknown]
  - Device information output issue [Unknown]
  - Product dose omission issue [Unknown]
  - Insulin-like growth factor increased [Unknown]
  - Bone density increased [Unknown]
  - Blood 25-hydroxycholecalciferol decreased [Unknown]
  - White blood cell count increased [Unknown]
  - Haematocrit increased [Unknown]
  - Red cell distribution width decreased [Unknown]
  - Platelet count increased [Unknown]
  - Neutrophil count increased [Unknown]
  - Lymphocyte count decreased [Unknown]
  - Monocyte count increased [Unknown]
  - Band neutrophil percentage increased [Unknown]
  - Blood cholesterol increased [Unknown]
  - Blood triglycerides increased [Unknown]
  - Total cholesterol/HDL ratio decreased [Unknown]
  - Very low density lipoprotein increased [Unknown]
  - Non-high-density lipoprotein cholesterol increased [Unknown]
  - Blood calcium increased [Unknown]
  - Glomerular filtration rate increased [Unknown]
